FAERS Safety Report 23121688 (Version 4)
Quarter: 2024Q1

REPORT INFORMATION
  Report Type: Spontaneous
  Country: JP (occurrence: JP)
  Receive Date: 20231029
  Receipt Date: 20240315
  Transmission Date: 20240410
  Serious: Yes (Hospitalization)
  Sender: FDA-Public Use
  Company Number: JP-TAKEDA-2023TJP014150

PATIENT
  Age: 47 Year
  Sex: Male

DRUGS (21)
  1. TEDUGLUTIDE [Suspect]
     Active Substance: TEDUGLUTIDE
     Indication: Short-bowel syndrome
     Dosage: 0.005 MILLIGRAM/KILOGRAM, QD
     Route: 058
     Dates: start: 20220715
  2. TEDUGLUTIDE [Suspect]
     Active Substance: TEDUGLUTIDE
     Indication: Short-bowel syndrome
     Dosage: 0.005 MILLIGRAM/KILOGRAM, QD
     Route: 058
     Dates: start: 20220715
  3. TEDUGLUTIDE [Suspect]
     Active Substance: TEDUGLUTIDE
     Indication: Short-bowel syndrome
     Dosage: 0.005 MILLIGRAM/KILOGRAM, QD
     Route: 058
     Dates: start: 20220715
  4. TEDUGLUTIDE [Suspect]
     Active Substance: TEDUGLUTIDE
     Indication: Short-bowel syndrome
     Dosage: 0.005 MILLIGRAM/KILOGRAM, QD
     Route: 058
     Dates: start: 20220715
  5. VONOPRAZAN FUMARATE [Concomitant]
     Active Substance: VONOPRAZAN FUMARATE
     Dosage: UNK
     Route: 065
  6. ROZEREM [Concomitant]
     Active Substance: RAMELTEON
     Dosage: UNK
     Route: 065
  7. CALCIUM POLYCARBOPHIL [Concomitant]
     Active Substance: CALCIUM POLYCARBOPHIL
     Dosage: UNK
     Route: 065
  8. LOPERAMIDE HYDROCHLORIDE [Concomitant]
     Active Substance: LOPERAMIDE HYDROCHLORIDE
     Dosage: UNK
     Route: 065
  9. HUMIRA [Concomitant]
     Active Substance: ADALIMUMAB
     Dosage: UNK
     Route: 065
  10. REBAMIPIDE [Concomitant]
     Active Substance: REBAMIPIDE
     Dosage: UNK
     Route: 065
  11. MERCAPTOPURINE [Concomitant]
     Active Substance: MERCAPTOPURINE
     Dosage: UNK
     Route: 065
  12. MIYA-BM [Concomitant]
     Active Substance: CLOSTRIDIUM BUTYRICUM SPORES STRAIN M-55
     Dosage: UNK
     Route: 065
  13. TRAMADOL [Concomitant]
     Active Substance: TRAMADOL\TRAMADOL HYDROCHLORIDE
     Dosage: UNK
     Route: 065
  14. COLESTILAN CHLORIDE [Concomitant]
     Active Substance: COLESTILAN CHLORIDE
     Dosage: UNK
     Route: 065
  15. BETAHISTINE MESILATE [Concomitant]
     Active Substance: BETAHISTINE MESILATE
     Dosage: UNK
     Route: 065
  16. DIPHENIDOL HYDROCHLORIDE [Concomitant]
     Active Substance: DIPHENIDOL HYDROCHLORIDE
     Dosage: UNK
     Route: 065
  17. METHYLCOBALAMIN [Concomitant]
     Active Substance: METHYLCOBALAMIN
     Dosage: UNK
     Route: 065
  18. Ryokeijutsukanto [Concomitant]
     Dosage: UNK
     Route: 065
  19. RUPAFIN [Concomitant]
     Active Substance: RUPATADINE FUMARATE
     Dosage: UNK
     Route: 065
  20. CODEINE PHOSPHATE [Concomitant]
     Active Substance: CODEINE PHOSPHATE
     Dosage: UNK
     Route: 065
  21. METEBANYL [Concomitant]
     Dosage: UNK
     Route: 065

REACTIONS (1)
  - Device related infection [Recovering/Resolving]

NARRATIVE: CASE EVENT DATE: 20231024
